FAERS Safety Report 25520385 (Version 1)
Quarter: 2025Q3

REPORT INFORMATION
  Report Type: Report from Study
  Country: US (occurrence: US)
  Receive Date: 20250704
  Receipt Date: 20250704
  Transmission Date: 20251021
  Serious: Yes (Other)
  Sender: UCB
  Company Number: US-UCBSA-2025025868

PATIENT
  Sex: Male
  Weight: 80.28 kg

DRUGS (13)
  1. BIMEKIZUMAB [Suspect]
     Active Substance: BIMEKIZUMAB
     Indication: Ankylosing spondylitis
     Dosage: 160 MILLIGRAM, EV 4 WEEKS
     Route: 058
     Dates: start: 20250106
  2. ETODOLAC [Concomitant]
     Active Substance: ETODOLAC
     Indication: Product used for unknown indication
  3. METHOTREXATE [Concomitant]
     Active Substance: METHOTREXATE
     Indication: Product used for unknown indication
  4. WARFARIN SODIUM [Concomitant]
     Active Substance: WARFARIN SODIUM
     Indication: Product used for unknown indication
  5. VITAMIN D3 [Concomitant]
     Active Substance: CHOLECALCIFEROL
     Indication: Product used for unknown indication
  6. VITAMIN C [Concomitant]
     Active Substance: ASCORBIC ACID
     Indication: Product used for unknown indication
  7. VITAMINS [Concomitant]
     Active Substance: VITAMINS
     Indication: Product used for unknown indication
  8. XARELTO [Concomitant]
     Active Substance: RIVAROXABAN
     Indication: Product used for unknown indication
  9. ZORYVE [Concomitant]
     Active Substance: ROFLUMILAST
     Indication: Product used for unknown indication
  10. COVID-19 VACCINE [Concomitant]
     Indication: COVID-19
  11. CALCIUM [Concomitant]
     Active Substance: CALCIUM
     Indication: Product used for unknown indication
  12. IRON [Concomitant]
     Active Substance: IRON
     Indication: Product used for unknown indication
  13. WARFARIN [Concomitant]
     Active Substance: WARFARIN
     Indication: Phlebitis

REACTIONS (9)
  - Ankylosing spondylitis [Recovering/Resolving]
  - Injection site haemorrhage [Recovered/Resolved]
  - Adverse drug reaction [Unknown]
  - Psoriasis [Recovered/Resolved]
  - Device issue [Unknown]
  - Hyperkeratosis [Unknown]
  - Onychomycosis [Unknown]
  - Oedema [Unknown]
  - Varicose vein [Unknown]

NARRATIVE: CASE EVENT DATE: 20250101
